FAERS Safety Report 7928002-9 (Version None)
Quarter: 2011Q4

REPORT INFORMATION
  Report Type: 
  Country: None (occurrence: None)
  Receive Date: 20111118
  Receipt Date: 20111115
  Transmission Date: 20120403
  Serious: No
  Sender: FDA-Public Use
  Company Number: US-PFIZER INC-2011241892

PATIENT
  Sex: Female

DRUGS (5)
  1. SIMVASTATIN [Concomitant]
     Dosage: 10 MG, UNK
  2. FOSAMAX [Concomitant]
     Dosage: 70 MG, UNK
  3. LEVOTHYROXINE [Concomitant]
     Dosage: 0.25 MG, UNK
  4. OMEPRAZOLE [Concomitant]
     Dosage: UNK
  5. ESTRING [Suspect]
     Dosage: UNK
     Dates: end: 20111010

REACTIONS (2)
  - VULVOVAGINAL PAIN [None]
  - VULVOVAGINAL DRYNESS [None]
